FAERS Safety Report 10210974 (Version 2)
Quarter: 2014Q2

REPORT INFORMATION
  Report Type: Report from Study
  Country: DE (occurrence: DE)
  Receive Date: 20140602
  Receipt Date: 20140602
  Transmission Date: 20141212
  Serious: Yes (Other)
  Sender: FDA-Public Use
  Company Number: DE-BRISTOL-MYERS SQUIBB COMPANY-18819342

PATIENT
  Age: 43 Year
  Sex: Male
  Weight: 78 kg

DRUGS (10)
  1. SPRYCEL [Suspect]
     Indication: ACUTE LYMPHOCYTIC LEUKAEMIA
     Dosage: 10DEC2012 (DAY 34)?INTERRUPTED:13-DEC-2012.
     Route: 048
     Dates: start: 20121202
  2. MESNA [Suspect]
  3. CYCLOPHOSPHAMIDE [Suspect]
     Dosage: 1000 MG/M2
     Route: 042
  4. MERCAPTOPURINE [Suspect]
  5. CYTARABINE [Suspect]
  6. METHOTREXATE [Suspect]
  7. NEUPOGEN [Suspect]
  8. ONDANSETRON [Concomitant]
     Route: 040
  9. HYDRATION [Concomitant]
     Route: 042
  10. LASIX [Concomitant]
     Route: 042

REACTIONS (4)
  - Hyperbilirubinaemia [Recovered/Resolved]
  - Hepatic enzyme increased [Unknown]
  - Cholestasis [Unknown]
  - Coagulation test [Unknown]
